FAERS Safety Report 10548052 (Version 1)
Quarter: 2014Q4

REPORT INFORMATION
  Report Type: Spontaneous
  Country: US (occurrence: None)
  Receive Date: 20141027
  Receipt Date: 20141027
  Transmission Date: 20150529
  Serious: Yes (Hospitalization)
  Sender: FDA-Public Use
  Company Number: None

PATIENT
  Age: 59 Year
  Sex: Male
  Weight: 92.3 kg

DRUGS (1)
  1. HEPARIN [Suspect]
     Active Substance: HEPARIN SODIUM
     Indication: ATRIAL FIBRILLATION
     Dosage: PROTOCOL UNITS?PER HOUR?IV
     Route: 042
     Dates: start: 20131118, end: 20131202

REACTIONS (3)
  - Thrombocytopenia [None]
  - Renal artery thrombosis [None]
  - Heparin-induced thrombocytopenia test [None]

NARRATIVE: CASE EVENT DATE: 20131210
